FAERS Safety Report 16945035 (Version 1)
Quarter: 2019Q4

REPORT INFORMATION
  Report Type: Report from Study
  Country: CA (occurrence: CA)
  Receive Date: 20191022
  Receipt Date: 20191022
  Transmission Date: 20200122
  Serious: Yes (Other)
  Sender: FDA-Public Use
  Company Number: CA-ROCHE-1980915

PATIENT
  Age: 71 Year
  Sex: Male
  Weight: 101.6 kg

DRUGS (18)
  1. RITUXAN [Suspect]
     Active Substance: RITUXIMAB
     Indication: ENCEPHALITIS AUTOIMMUNE
     Dosage: PREVIOUS RITUXAN DOSE WAS RECEIVED ON 18-AUG-2017
     Route: 042
     Dates: start: 20170802
  2. B COMPLEX [VITAMIN B COMPLEX] [Concomitant]
     Dosage: 1 DAILY
     Route: 065
     Dates: start: 20180406
  3. DIPHENHYDRAMINE HCL [Concomitant]
     Active Substance: DIPHENHYDRAMINE HYDROCHLORIDE
     Indication: PREMEDICATION
     Dosage: ONGOING
     Route: 048
     Dates: start: 20170802
  4. CITALOPRAM [Concomitant]
     Active Substance: CITALOPRAM HYDROBROMIDE
     Dosage: ONGOING
     Route: 065
  5. RITUXAN [Suspect]
     Active Substance: RITUXIMAB
     Indication: LIMBIC ENCEPHALITIS
     Route: 042
     Dates: start: 20180424
  6. RITUXAN [Suspect]
     Active Substance: RITUXIMAB
     Route: 042
     Dates: start: 20181026
  7. CITALOPRAM [Concomitant]
     Active Substance: CITALOPRAM HYDROBROMIDE
     Dosage: 1 X 10 ML X 1 DAILY
     Route: 065
     Dates: start: 20170713
  8. CHONDROITIN;GLUCOSAMINE [Concomitant]
     Dosage: 1 DAILY
     Route: 065
     Dates: start: 20180406
  9. METHYLPREDNISOLONE. [Concomitant]
     Active Substance: METHYLPREDNISOLONE
     Indication: PREMEDICATION
     Route: 042
     Dates: start: 20180424
  10. ACETAMINOPHEN. [Concomitant]
     Active Substance: ACETAMINOPHEN
     Indication: PREMEDICATION
     Route: 048
     Dates: start: 20180424
  11. METHYLPREDNISOLONE. [Concomitant]
     Active Substance: METHYLPREDNISOLONE
     Dosage: ONGOING
     Route: 042
     Dates: start: 20170802
  12. KEPPRA [Suspect]
     Active Substance: LEVETIRACETAM
     Indication: PRODUCT USED FOR UNKNOWN INDICATION
     Dosage: 1 X 125 ML X 3 DAILY?NOT ON KEPPRA FOR FEW MONTHS
     Route: 065
     Dates: start: 20170713
  13. MARIJUANA [Concomitant]
     Active Substance: CANNABIS SATIVA SUBSP. INDICA TOP
     Route: 065
     Dates: start: 20170713
  14. SYMBICORT [Concomitant]
     Active Substance: BUDESONIDE\FORMOTEROL FUMARATE DIHYDRATE
     Dosage: 1 PUFFS X 3 DAILY
     Route: 065
     Dates: start: 20170713
  15. SYMBICORT [Concomitant]
     Active Substance: BUDESONIDE\FORMOTEROL FUMARATE DIHYDRATE
     Dosage: ONGOING
     Route: 065
  16. ACETAMINOPHEN. [Concomitant]
     Active Substance: ACETAMINOPHEN
     Dosage: ONGOING
     Route: 048
     Dates: start: 20170802
  17. VENTOLIN [Concomitant]
     Active Substance: ALBUTEROL SULFATE
     Dosage: 2 PUFFS X 3 DAILY
     Route: 065
     Dates: start: 20170713
  18. DIPHENHYDRAMINE. [Concomitant]
     Active Substance: DIPHENHYDRAMINE
     Indication: PREMEDICATION
     Route: 048
     Dates: start: 20180424

REACTIONS (13)
  - Cough [Not Recovered/Not Resolved]
  - Pneumonia [Not Recovered/Not Resolved]
  - Seizure [Recovered/Resolved]
  - Balance disorder [Not Recovered/Not Resolved]
  - Cough [Recovering/Resolving]
  - Nasopharyngitis [Not Recovered/Not Resolved]
  - Headache [Not Recovered/Not Resolved]
  - Chills [Recovered/Resolved]
  - Off label use [Unknown]
  - Rales [Not Recovered/Not Resolved]
  - Weight decreased [Unknown]
  - Pneumonia [Unknown]
  - Bronchitis [Unknown]

NARRATIVE: CASE EVENT DATE: 20170802
